FAERS Safety Report 5958386-2 (Version None)
Quarter: 2008Q4

REPORT INFORMATION
  Report Type: 
  Country: None (occurrence: None)
  Receive Date: 20081119
  Receipt Date: 20081112
  Transmission Date: 20090506
  Serious: Yes (Other)
  Sender: FDA-Public Use
  Company Number: CA-JNJCH-2008054532

PATIENT
  Age: 62 Year
  Sex: Female

DRUGS (1)
  1. REACTINE ALLERGY + SINUS [Suspect]
     Indication: HYPERSENSITIVITY
     Dosage: TEXT:ONE TABLET
     Route: 048
     Dates: start: 20081111, end: 20081111

REACTIONS (8)
  - DRY MOUTH [None]
  - DRY THROAT [None]
  - FATIGUE [None]
  - NAUSEA [None]
  - PALPITATIONS [None]
  - RESTLESSNESS [None]
  - SENSATION OF HEAVINESS [None]
  - VISION BLURRED [None]
